FAERS Safety Report 4318532-3 (Version None)
Quarter: 2004Q1

REPORT INFORMATION
  Report Type: 
  Country: None (occurrence: None)
  Receive Date: 20040318
  Receipt Date: 20040309
  Transmission Date: 20041129
  Serious: Yes (Death, Hospitalization)
  Sender: FDA-Public Use
  Company Number: PHBS2004ES03181

PATIENT
  Age: 73 Year
  Sex: Female

DRUGS (4)
  1. GLEEVEC [Suspect]
     Indication: CHRONIC MYELOID LEUKAEMIA
     Dosage: 400 MG/DAY
     Route: 048
     Dates: start: 20030321
  2. HYDREA [Concomitant]
  3. MORPHINE SULFATE [Concomitant]
  4. PRISDAL [Concomitant]

REACTIONS (3)
  - DEATH [None]
  - PNEUMONIA [None]
  - URINARY TRACT INFECTION [None]
